FAERS Safety Report 5664267-4 (Version None)
Quarter: 2008Q1

REPORT INFORMATION
  Report Type: 
  Country: None (occurrence: None)
  Receive Date: 20080314
  Receipt Date: 20080307
  Transmission Date: 20080703
  Serious: Yes (Other)
  Sender: FDA-Public Use
  Company Number: US-GENENTECH-256922

PATIENT
  Age: 16 Year
  Sex: Male
  Weight: 74.83 kg

DRUGS (9)
  1. XOLAIR [Suspect]
     Indication: ASTHMA
     Dosage: 375 MG, Q2W
     Route: 058
     Dates: start: 20080225
  2. ZYRTEC [Concomitant]
     Indication: DRUG USE FOR UNKNOWN INDICATION
  3. SINGULAIR [Concomitant]
     Indication: DRUG USE FOR UNKNOWN INDICATION
  4. INTAL [Concomitant]
     Indication: DRUG USE FOR UNKNOWN INDICATION
  5. FLOVENT [Concomitant]
     Indication: DRUG USE FOR UNKNOWN INDICATION
  6. PATANOL [Concomitant]
     Indication: DRUG USE FOR UNKNOWN INDICATION
  7. PRILOSEC [Concomitant]
     Indication: DRUG USE FOR UNKNOWN INDICATION
  8. ALBUTEROL [Concomitant]
     Indication: DRUG USE FOR UNKNOWN INDICATION
     Dosage: UNK, PRN
  9. NASONEX [Concomitant]
     Indication: DRUG USE FOR UNKNOWN INDICATION

REACTIONS (4)
  - FLUSHING [None]
  - HYPERSENSITIVITY [None]
  - PRURITUS [None]
  - WHEEZING [None]
